FAERS Safety Report 18677110 (Version 1)
Quarter: 2020Q4

REPORT INFORMATION
  Report Type: Spontaneous
  Country: DE (occurrence: DE)
  Receive Date: 20201229
  Receipt Date: 20201229
  Transmission Date: 20210114
  Serious: Yes (Other)
  Sender: FDA-Public Use
  Company Number: DE-ALLERGAN-2049960US

PATIENT
  Sex: Male

DRUGS (3)
  1. DORZOLAMIDE TIMOLOL [Concomitant]
     Active Substance: DORZOLAMIDE
     Indication: OCULAR HYPERTENSION
  2. ALPHAGAN P [Suspect]
     Active Substance: BRIMONIDINE TARTRATE
     Indication: OCULAR HYPERTENSION
     Dosage: UNK
  3. TRAVOPROST. [Concomitant]
     Active Substance: TRAVOPROST
     Indication: OCULAR HYPERTENSION

REACTIONS (1)
  - Iridocyclitis [Recovered/Resolved]
